FAERS Safety Report 16764254 (Version 9)
Quarter: 2020Q3

REPORT INFORMATION
  Report Type: Report from Study
  Country: CO (occurrence: CO)
  Receive Date: 20190902
  Receipt Date: 20200815
  Transmission Date: 20201102
  Serious: Yes (Other)
  Sender: FDA-Public Use
  Company Number: CO-ACTELION-A-CH2019-191416

PATIENT
  Age: 53 Year
  Sex: Female
  Weight: 64 kg

DRUGS (6)
  1. VENTAVIS [Concomitant]
     Active Substance: ILOPROST
     Dosage: UNK
     Route: 055
     Dates: end: 2019
  2. VENTAVIS [Concomitant]
     Active Substance: ILOPROST
     Dosage: 0.5 MG, TID
     Dates: end: 2019
  3. OPSUMIT [Suspect]
     Active Substance: MACITENTAN
     Indication: PULMONARY ARTERIAL HYPERTENSION
     Dosage: 10 MG, QD
     Route: 048
     Dates: start: 20180101, end: 20190726
  4. SILDENAFIL. [Concomitant]
     Active Substance: SILDENAFIL
  5. OPSUMIT [Suspect]
     Active Substance: MACITENTAN
     Dosage: 10 MG, QD
     Route: 048
     Dates: start: 20190814, end: 20200707
  6. ILOPROST. [Concomitant]
     Active Substance: ILOPROST
     Dosage: UNK
     Route: 055
     Dates: start: 2019

REACTIONS (38)
  - Spleen disorder [Not Recovered/Not Resolved]
  - Dysphonia [Not Recovered/Not Resolved]
  - Osteopenia [Not Recovered/Not Resolved]
  - Urine output decreased [Not Recovered/Not Resolved]
  - Tachycardia [Not Recovered/Not Resolved]
  - Visual impairment [Unknown]
  - Weight increased [Not Recovered/Not Resolved]
  - Mitral valve incompetence [Not Recovered/Not Resolved]
  - Immunodeficiency [Not Recovered/Not Resolved]
  - Sciatica [Unknown]
  - Arrhythmia [Not Recovered/Not Resolved]
  - Rheumatic fever [Not Recovered/Not Resolved]
  - Nasopharyngitis [Not Recovered/Not Resolved]
  - Aggression [Not Recovered/Not Resolved]
  - Product supply issue [Unknown]
  - Rhinorrhoea [Recovering/Resolving]
  - Fluid retention [Not Recovered/Not Resolved]
  - Anxiety [Not Recovered/Not Resolved]
  - Pain in extremity [Unknown]
  - Cardiac failure [Not Recovered/Not Resolved]
  - Nasal congestion [Not Recovered/Not Resolved]
  - Headache [Not Recovered/Not Resolved]
  - Blood bilirubin increased [Not Recovered/Not Resolved]
  - Productive cough [Not Recovered/Not Resolved]
  - Sinusitis [Recovering/Resolving]
  - Product container seal issue [Not Recovered/Not Resolved]
  - Back pain [Unknown]
  - N-terminal prohormone brain natriuretic peptide increased [Not Recovered/Not Resolved]
  - Renal pain [Not Recovered/Not Resolved]
  - Arthralgia [Unknown]
  - Urinary tract infection bacterial [Not Recovered/Not Resolved]
  - Cough [Not Recovered/Not Resolved]
  - Burning sensation [Recovering/Resolving]
  - Sneezing [Not Recovered/Not Resolved]
  - Osteoporosis [Not Recovered/Not Resolved]
  - Insomnia [Unknown]
  - Influenza [Recovering/Resolving]
  - Secretion discharge [Not Recovered/Not Resolved]

NARRATIVE: CASE EVENT DATE: 2019
